FAERS Safety Report 19951113 (Version 2)
Quarter: 2022Q1

REPORT INFORMATION
  Report Type: Report from Study
  Country: US (occurrence: US)
  Receive Date: 20211014
  Receipt Date: 20220105
  Transmission Date: 20220423
  Serious: Yes (Other)
  Sender: FDA-Public Use
  Company Number: US-TAIHO ONCOLOGY INC-EU-2021-01974

PATIENT
  Age: 75 Year
  Sex: Female

DRUGS (7)
  1. LONSURF [Suspect]
     Active Substance: TIPIRACIL HYDROCHLORIDE\TRIFLURIDINE
     Indication: Colon cancer
     Dosage: CURRENT CYCLE UNKNOWN
     Route: 048
     Dates: start: 20210428
  2. HYDROCODONE [Concomitant]
     Active Substance: HYDROCODONE
  3. OMEPRAZOLE [Concomitant]
     Active Substance: OMEPRAZOLE
  4. AVASTIN [Concomitant]
     Active Substance: BEVACIZUMAB
  5. CIPROFLOXACIN [Concomitant]
     Active Substance: CIPROFLOXACIN
  6. ACETAMINOPHEN\HYDROCODONE [Concomitant]
     Active Substance: ACETAMINOPHEN\HYDROCODONE
  7. NAUSEA LIQUID RELIEF [Concomitant]

REACTIONS (14)
  - Full blood count abnormal [Unknown]
  - Haemorrhage [Not Recovered/Not Resolved]
  - Dehydration [Not Recovered/Not Resolved]
  - Contusion [Not Recovered/Not Resolved]
  - Glossodynia [Not Recovered/Not Resolved]
  - Dry skin [Recovering/Resolving]
  - Dysgeusia [Not Recovered/Not Resolved]
  - Cytopenia [Unknown]
  - Fatigue [Not Recovered/Not Resolved]
  - White blood cell count decreased [Not Recovered/Not Resolved]
  - Diarrhoea [Not Recovered/Not Resolved]
  - Nausea [Not Recovered/Not Resolved]
  - Decreased appetite [Not Recovered/Not Resolved]
  - Stomatitis [Not Recovered/Not Resolved]

NARRATIVE: CASE EVENT DATE: 20210601
